FAERS Safety Report 7443204-6 (Version None)
Quarter: 2011Q2

REPORT INFORMATION
  Report Type: 
  Country: None (occurrence: None)
  Receive Date: 20110428
  Receipt Date: 20110420
  Transmission Date: 20111010
  Serious: Yes (Hospitalization)
  Sender: FDA-Public Use
  Company Number: B0711760A

PATIENT
  Sex: Female

DRUGS (8)
  1. CRAVIT [Concomitant]
     Dosage: 500MG PER DAY
     Route: 065
  2. DEPAKENE [Concomitant]
     Dosage: 600MG PER DAY
     Route: 048
  3. SEROQUEL [Concomitant]
     Dosage: 300MG PER DAY
     Route: 048
  4. XYZAL [Concomitant]
     Dosage: 5MG PER DAY
     Route: 048
  5. HALCION [Concomitant]
     Dosage: .25MG PER DAY
     Route: 048
  6. EVAMYL [Concomitant]
     Dosage: 1MG PER DAY
     Route: 048
  7. LAMICTAL [Suspect]
     Dosage: 25MG PER DAY
     Route: 048
     Dates: start: 20110301, end: 20110318
  8. LENDORMIN [Concomitant]
     Dosage: .25MG PER DAY
     Route: 048

REACTIONS (4)
  - OCULOMUCOCUTANEOUS SYNDROME [None]
  - PAIN [None]
  - RASH [None]
  - DYSPNOEA [None]
